FAERS Safety Report 7313131-3 (Version None)
Quarter: 2011Q1

REPORT INFORMATION
  Report Type: 
  Country: None (occurrence: None)
  Receive Date: 20110215
  Receipt Date: 20110215
  Transmission Date: 20110831
  Serious: Yes (Hospitalization)
  Sender: FDA-Public Use
  Company Number: None

PATIENT
  Age: 41 Year
  Sex: Male
  Weight: 98 kg

DRUGS (1)
  1. DIVALPROEX SODIUM [Suspect]
     Indication: POST-TRAUMATIC STRESS DISORDER
     Dosage: 500 MG OTHER PO
     Route: 048
     Dates: start: 20091027, end: 20100831

REACTIONS (2)
  - PANCREATITIS ACUTE [None]
  - PANCREATITIS NECROTISING [None]
